FAERS Safety Report 20099240 (Version 2)
Quarter: 2021Q4

REPORT INFORMATION
  Report Type: Report from Study
  Country: US (occurrence: US)
  Receive Date: 20211122
  Receipt Date: 20211222
  Transmission Date: 20220303
  Serious: Yes (Other)
  Sender: FDA-Public Use
  Company Number: US-Taiho Oncology Inc-EU-2021-00865

PATIENT
  Age: 70 Year
  Sex: Male
  Weight: 93.978 kg

DRUGS (7)
  1. LONSURF [Suspect]
     Active Substance: TIPIRACIL HYDROCHLORIDE\TRIFLURIDINE
     Indication: Rectal cancer
     Dosage: CURRENT CYCLE UNKNOWN
     Route: 048
     Dates: start: 20210315
  2. LONSURF [Suspect]
     Active Substance: TIPIRACIL HYDROCHLORIDE\TRIFLURIDINE
     Indication: Metastases to liver
     Dosage: CURRENT CYCLE UNKNOWN
     Route: 048
     Dates: end: 20210504
  3. LONSURF [Suspect]
     Active Substance: TIPIRACIL HYDROCHLORIDE\TRIFLURIDINE
     Indication: Cholangiocarcinoma
  4. AVASTIN [Suspect]
     Active Substance: BEVACIZUMAB
     Indication: Rectal cancer
  5. STIVARGA [Suspect]
     Active Substance: REGORAFENIB
     Indication: Metastases to liver
  6. ATIVAN [Concomitant]
     Active Substance: LORAZEPAM
  7. PRILOSEC [Concomitant]
     Active Substance: OMEPRAZOLE MAGNESIUM

REACTIONS (24)
  - Headache [Unknown]
  - Dyspepsia [Unknown]
  - Vomiting [Unknown]
  - Nausea [Unknown]
  - Abdominal pain upper [Recovering/Resolving]
  - Inflammatory pain [Unknown]
  - Skin discolouration [Unknown]
  - Hyperaesthesia [Unknown]
  - Gait disturbance [Unknown]
  - Neuropathy peripheral [Unknown]
  - Oral pain [Unknown]
  - Constipation [Unknown]
  - Dermatitis [Unknown]
  - Dysphonia [Unknown]
  - Feeling abnormal [Unknown]
  - Malaise [Unknown]
  - Blood pressure increased [Unknown]
  - Diarrhoea [Unknown]
  - Gait inability [Unknown]
  - Erythema [Unknown]
  - Pain in extremity [Unknown]
  - Drug intolerance [Unknown]
  - Tooth extraction [Unknown]
  - Off label use [Unknown]
